FAERS Safety Report 6631838-8 (Version None)
Quarter: 2010Q1

REPORT INFORMATION
  Report Type: 
  Country: None (occurrence: None)
  Receive Date: 20100312
  Receipt Date: 20100309
  Transmission Date: 20100710
  Serious: Yes (Death)
  Sender: FDA-Public Use
  Company Number: DK-ROCHE-662520

PATIENT
  Sex: Female
  Weight: 85.3 kg

DRUGS (18)
  1. RIVOTRIL [Suspect]
     Indication: SEDATIVE THERAPY
     Route: 048
     Dates: start: 20020212
  2. RIVOTRIL [Suspect]
     Dosage: REPORTED AS 1+1+2+0  MG. REDUCTION OF DOSE STARTED ON 17 FEB 2009 (1+2 MG DAILY)
     Route: 048
     Dates: start: 20081205
  3. RIVOTRIL [Suspect]
     Route: 048
     Dates: start: 20090416
  4. ERYTHROMYCIN [Suspect]
     Indication: DRUG USE FOR UNKNOWN INDICATION
     Dosage: PROBABLY THE PATIENT RECEIVED ONLY 1 DOSE.
     Route: 065
     Dates: start: 20090507
  5. LYSANTIN [Suspect]
     Route: 048
     Dates: start: 20080206, end: 20081205
  6. CISORDINOL [Suspect]
     Route: 048
     Dates: start: 20081205
  7. CISORDINOL [Suspect]
     Route: 048
     Dates: start: 20090206
  8. IMIPRAMINE [Suspect]
     Dosage: DRUG NAME: IMIPRAMIN ^DAK^
     Route: 048
     Dates: start: 20080206
  9. LEPONEX [Suspect]
     Route: 048
     Dates: start: 19830101
  10. LEPONEX [Suspect]
     Dosage: FREQ: 200 MG AT  8 AM + 300 MG AT 12 AM + 300 MG AT 6 PM
     Route: 048
     Dates: start: 20080206
  11. RISPERIDONE [Suspect]
     Dosage: REPORTED AS 5+0+5+0 MG
     Route: 048
     Dates: start: 20081205
  12. RISPERIDONE [Suspect]
     Dosage: INDICATION: ANTIPSYCHOTIC DRUG LEVEL THERAPEUTIC
     Route: 048
     Dates: start: 20090216
  13. TRUXAL [Suspect]
     Dosage: ALSO REPORTED AS: SAEM DOSE AS LEPONEX BY FEVER.
     Route: 048
     Dates: start: 20090318
  14. LACTULOSE [Concomitant]
     Indication: LAXATIVE SUPPORTIVE CARE
     Route: 048
     Dates: start: 20041111
  15. LACTULOSE [Concomitant]
     Route: 048
     Dates: start: 20081205
  16. PINEX [Concomitant]
     Indication: PAIN
     Dosage: FREQUENCY REPORTED AS: 1G MAX. 3TIMES DAILY.
     Route: 048
     Dates: start: 19960919
  17. ACTILAX [Concomitant]
     Indication: LAXATIVE SUPPORTIVE CARE
     Dosage: DOSE 15 DROPS QD
     Route: 048
     Dates: start: 20070821
  18. MULTITABS [Concomitant]
     Route: 048
     Dates: start: 20041111

REACTIONS (8)
  - BASAL CELL CARCINOMA [None]
  - BLOOD GLUCOSE INCREASED [None]
  - BREAST CANCER [None]
  - ELECTROCARDIOGRAM QT PROLONGED [None]
  - HAEMOGLOBIN DECREASED [None]
  - HIGH DENSITY LIPOPROTEIN INCREASED [None]
  - SUDDEN DEATH [None]
  - WHITE BLOOD CELL COUNT INCREASED [None]
